FAERS Safety Report 9563415 (Version 1)
Quarter: 2013Q1

REPORT INFORMATION
  Report Type: Spontaneous
  Country: US (occurrence: None)
  Receive Date: 20121218
  Receipt Date: 20121218
  Transmission Date: 20140127
  Serious: Yes (Hospitalization)
  Sender: FDA-Public Use
  Company Number: PHEH2012US011610

PATIENT
  Age: 60 Year
  Sex: Female

DRUGS (1)
  1. ZOMETA (ZOLEDRONATE) SOLUTION FOR INJECTION [Suspect]
     Indication: PLASMA CELL MYELOMA
     Route: 042
     Dates: start: 2001, end: 2011

REACTIONS (1)
  - Atypical femur fracture [None]
